FAERS Safety Report 20581889 (Version 1)
Quarter: 2022Q1

REPORT INFORMATION
  Report Type: Report from Study
  Country: US (occurrence: US)
  Receive Date: 20220311
  Receipt Date: 20220311
  Transmission Date: 20220423
  Serious: Yes (Hospitalization)
  Sender: FDA-Public Use
  Company Number: US-Accord-256716

PATIENT
  Sex: Female
  Weight: 98.88 kg

DRUGS (6)
  1. CLOZAPINE [Suspect]
     Active Substance: CLOZAPINE
     Indication: Schizophrenia
     Dosage: TWICE A DAY
     Route: 048
     Dates: start: 2021
  2. BENZTROPINE [Concomitant]
     Active Substance: BENZTROPINE
     Dosage: THREE TIMES A DAY
     Route: 048
  3. DILTIAZEM [Concomitant]
     Active Substance: DILTIAZEM
     Dosage: ONCE A DAY
     Route: 048
  4. CLONAZEPAM [Concomitant]
     Active Substance: CLONAZEPAM
     Dosage: TWICE A DAY
  5. FUROSEMIDE [Concomitant]
     Active Substance: FUROSEMIDE
     Dosage: ONCE DAY
     Route: 048
  6. RISPERIDONE [Concomitant]
     Active Substance: RISPERIDONE
     Dosage: TWICE A DAY
     Route: 048

REACTIONS (3)
  - Ammonia increased [Not Recovered/Not Resolved]
  - Constipation [Not Recovered/Not Resolved]
  - Hernia [Not Recovered/Not Resolved]
